FAERS Safety Report 21830180 (Version 2)
Quarter: 2023Q2

REPORT INFORMATION
  Report Type: Spontaneous
  Country: US (occurrence: US)
  Receive Date: 20230106
  Receipt Date: 20230404
  Transmission Date: 20230722
  Serious: Yes (Other)
  Sender: FDA-Public Use
  Company Number: US-JNJFOC-20230108799

PATIENT
  Age: 43 Year
  Sex: Female

DRUGS (3)
  1. ELMIRON [Suspect]
     Active Substance: PENTOSAN POLYSULFATE SODIUM
     Indication: Cystitis interstitial
     Dosage: 2 IN MORNING AND 2 AT NIGHTTIME
     Route: 048
     Dates: start: 19960901, end: 20110401
  2. ELMIRON [Suspect]
     Active Substance: PENTOSAN POLYSULFATE SODIUM
     Dosage: 2 CAPSULES AT NIGHT TIME
     Route: 048
     Dates: start: 20110501, end: 20150401
  3. ELMIRON [Suspect]
     Active Substance: PENTOSAN POLYSULFATE SODIUM
     Dosage: 2 CAPSULES THRICE A DAY
     Route: 048
     Dates: start: 20150501, end: 20200310

REACTIONS (4)
  - Dry age-related macular degeneration [Not Recovered/Not Resolved]
  - Retinal dystrophy [Not Recovered/Not Resolved]
  - Pigmentary maculopathy [Unknown]
  - Off label use [Unknown]

NARRATIVE: CASE EVENT DATE: 19960901
